FAERS Safety Report 5765005-7 (Version None)
Quarter: 2008Q2

REPORT INFORMATION
  Report Type: 
  Country: None (occurrence: None)
  Receive Date: 20080605
  Receipt Date: 20080527
  Transmission Date: 20081010
  Serious: Yes (Death, Hospitalization, Other)
  Sender: FDA-Public Use
  Company Number: 163-21880-08051609

PATIENT
  Age: 65 Year
  Sex: Female

DRUGS (14)
  1. REVLIMID [Suspect]
     Indication: MULTIPLE MYELOMA
     Dosage: 25 MG, DAILY, ORAL ; 15 MG, DAILY, ORAL
     Route: 048
     Dates: start: 20071201, end: 20080101
  2. REVLIMID [Suspect]
     Indication: MULTIPLE MYELOMA
     Dosage: 25 MG, DAILY, ORAL ; 15 MG, DAILY, ORAL
     Route: 048
     Dates: start: 20080104, end: 20080201
  3. ZOLOFT (SERTRALINE HYDROCHLORIDE) (PILL) [Concomitant]
  4. POTASSIUM CHLORIDE [Concomitant]
  5. REGLAN [Concomitant]
  6. TRICOR [Concomitant]
  7. DIGOXIN [Concomitant]
  8. DEXAMETHASONE TAB [Concomitant]
  9. NITROGLYCERIN [Concomitant]
  10. ALBUTEROL [Concomitant]
  11. ATROVENT [Concomitant]
  12. SINGULAIR [Concomitant]
  13. XANAX [Concomitant]
  14. ASPIRIN [Concomitant]

REACTIONS (13)
  - ACUTE MYOCARDIAL INFARCTION [None]
  - ANAEMIA [None]
  - ASTHENIA [None]
  - BLOOD CHLORIDE DECREASED [None]
  - BLOOD GLUCOSE INCREASED [None]
  - BLOOD POTASSIUM DECREASED [None]
  - CARDIOMEGALY [None]
  - DISEASE PROGRESSION [None]
  - DYSPHAGIA [None]
  - HEPARIN-INDUCED THROMBOCYTOPENIA [None]
  - HEPATITIS [None]
  - MULTIPLE MYELOMA [None]
  - THERAPEUTIC AGENT TOXICITY [None]
